FAERS Safety Report 7699973-3 (Version None)
Quarter: 2011Q3

REPORT INFORMATION
  Report Type: 
  Country: None (occurrence: None)
  Receive Date: 20110822
  Receipt Date: 20110808
  Transmission Date: 20111222
  Serious: Yes (Hospitalization, Other)
  Sender: FDA-Public Use
  Company Number: JP-CELGENEUS-087-50794-11081276

PATIENT
  Age: 68 Year
  Sex: Male

DRUGS (8)
  1. VIDAZA [Suspect]
     Dosage: 75 MILLIGRAM/SQ. METER
     Route: 041
     Dates: start: 20110620
  2. RABEPRAZOLE SODIUM [Concomitant]
     Route: 065
     Dates: start: 20100821
  3. TAMSULOSIN HCL [Concomitant]
     Route: 065
  4. SULFAMETHOXAZOLE [Concomitant]
     Route: 065
     Dates: start: 20100826
  5. CYTARABINE [Concomitant]
     Route: 065
  6. VIDAZA [Suspect]
     Dosage: 75 MILLIGRAM/SQ. METER
     Route: 041
     Dates: start: 20110523
  7. DAUNORUBICIN HCL [Concomitant]
     Route: 065
  8. ITRACONAZOLE [Concomitant]
     Route: 065
     Dates: start: 20100906

REACTIONS (3)
  - HAEMOPTYSIS [None]
  - CHEST PAIN [None]
  - PULMONARY CAVITATION [None]
